FAERS Safety Report 4538468-2 (Version None)
Quarter: 2004Q4

REPORT INFORMATION
  Report Type: 
  Country: None (occurrence: None)
  Receive Date: 20041221
  Receipt Date: 20041210
  Transmission Date: 20050328
  Serious: Yes (Life-Threatening, Hospitalization)
  Sender: FDA-Public Use
  Company Number: GR-2004-036392

PATIENT
  Age: 77 Year
  Sex: Female

DRUGS (2)
  1. ULTRAVIST 370 [Suspect]
     Indication: ABDOMEN SCAN
     Dosage: 120 ML, 1 DOSE, INTRAVENOUS
     Route: 042
     Dates: start: 20041206, end: 20041206
  2. HYDROCORTISONE [Concomitant]

REACTIONS (4)
  - BRONCHOSPASM [None]
  - CONTRAST MEDIA REACTION [None]
  - DYSPNOEA [None]
  - PULMONARY OEDEMA [None]
